FAERS Safety Report 10216121 (Version 1)
Quarter: 2013Q4

REPORT INFORMATION
  Report Type: Spontaneous
  Country: US (occurrence: None)
  Receive Date: 20131121
  Receipt Date: 20131121
  Transmission Date: 20140711
  Serious: Yes (Other)
  Sender: FDA-Public Use
  Company Number: ADR-2013-01868

PATIENT
  Age: 52 Year
  Sex: Female

DRUGS (1)
  1. LIORESAL INTRATHECAL [Suspect]
     Indication: MUSCLE SPASTICITY

REACTIONS (4)
  - Device related infection [None]
  - Implant site infection [None]
  - Disease complication [None]
  - Drug withdrawal syndrome [None]
